FAERS Safety Report 14823626 (Version 5)
Quarter: 2018Q4

REPORT INFORMATION
  Report Type: Report from Study
  Country: CN (occurrence: CN)
  Receive Date: 20180428
  Receipt Date: 20181025
  Transmission Date: 20190204
  Serious: Yes (Death, Hospitalization)
  Sender: FDA-Public Use
  Company Number: CN-ROCHE-2111748

PATIENT
  Age: 40 Year
  Sex: Female
  Weight: 42.4 kg

DRUGS (5)
  1. RECOMBINANT HUMAN INTERLEUKIN-11 [Concomitant]
     Indication: PLATELET COUNT INCREASED
     Route: 065
     Dates: start: 20180425, end: 20180427
  2. TRASTUZUMAB EMTANSINE [Suspect]
     Active Substance: ADO-TRASTUZUMAB EMTANSINE
     Indication: HER-2 POSITIVE BREAST CANCER
     Dosage: MOST RECENT DOSE PRIOR TO SAE ONSET: 30/MAR/2018
     Route: 042
     Dates: start: 20180330
  3. CEFUROXIME AXETIL. [Concomitant]
     Active Substance: CEFUROXIME AXETIL
     Route: 065
     Dates: start: 20180416, end: 20180417
  4. TETRACAINE. [Concomitant]
     Active Substance: TETRACAINE
     Indication: ANAESTHESIA
     Route: 065
     Dates: start: 20180412, end: 20180412
  5. MONTELUKAST [Concomitant]
     Active Substance: MONTELUKAST SODIUM
     Route: 065
     Dates: start: 20180416, end: 20180417

REACTIONS (1)
  - Hydronephrosis [Not Recovered/Not Resolved]

NARRATIVE: CASE EVENT DATE: 20180411
